FAERS Safety Report 8444540-7 (Version None)
Quarter: 2012Q2

REPORT INFORMATION
  Report Type: 
  Country: None (occurrence: None)
  Receive Date: 20120618
  Receipt Date: 20120614
  Transmission Date: 20120825
  Serious: Yes (Other)
  Sender: FDA-Public Use
  Company Number: BE-AMGEN-BELCT2012030212

PATIENT
  Age: 40 Year

DRUGS (9)
  1. LORAZEPAM [Concomitant]
     Dosage: 2.5 MG, UNK
  2. ATACAND [Concomitant]
     Dosage: 16 MG, UNK
  3. DENOSUMAB [Suspect]
     Indication: BREAST CANCER
     Dosage: 120 MG, UNK
  4. BISOPROLOL FUMARATE [Concomitant]
  5. MEDROL [Concomitant]
     Dosage: 32 MG, PRN
     Dates: start: 20110412, end: 20110528
  6. TAXOTERE [Concomitant]
     Dosage: 100 MG/M2, Q3WK
     Dates: start: 20110413, end: 20110525
  7. ACETAMINOPHEN [Concomitant]
     Dosage: 1 G, UNK
  8. LANSOPRAZOLE [Concomitant]
  9. PAROXETINE HYDROCHLORIDE [Concomitant]
     Dosage: 50 MG, UNK

REACTIONS (6)
  - EXPOSED BONE IN JAW [None]
  - ACTINOMYCOSIS [None]
  - OSTEITIS [None]
  - PAIN IN JAW [None]
  - SINUS DISORDER [None]
  - OSTEONECROSIS [None]
